FAERS Safety Report 5302116-4 (Version None)
Quarter: 2007Q2

REPORT INFORMATION
  Report Type: 
  Country: None (occurrence: None)
  Receive Date: 20070419
  Receipt Date: 20070418
  Transmission Date: 20071010
  Serious: No
  Sender: FDA-Public Use
  Company Number: DE-GLAXOSMITHKLINE-B0466616A

PATIENT
  Age: 40 Year
  Sex: Female

DRUGS (2)
  1. FORMIGRAN [Suspect]
     Indication: DRUG USE FOR UNKNOWN INDICATION
  2. ASCOTOP [Concomitant]

REACTIONS (1)
  - HAEMATURIA [None]
